FAERS Safety Report 4354518-0 (Version None)
Quarter: 2004Q2

REPORT INFORMATION
  Report Type: 
  Country: None (occurrence: None)
  Receive Date: 20040503
  Receipt Date: 20040415
  Transmission Date: 20050107
  Serious: Yes (Hospitalization)
  Sender: FDA-Public Use
  Company Number: 189486

PATIENT
  Age: 22 Year
  Sex: Female
  Weight: 157.3982 kg

DRUGS (5)
  1. AVONEX [Suspect]
     Indication: MULTIPLE SCLEROSIS
     Dosage: 30 MCG QW IM
     Route: 030
     Dates: start: 20020726
  2. IBUPROFEN [Concomitant]
  3. WELLBUTRIN [Concomitant]
  4. YASMIN [Concomitant]
  5. PROTONIX [Concomitant]

REACTIONS (4)
  - ARTERIOSCLEROSIS [None]
  - POST PROCEDURAL COMPLICATION [None]
  - SUPRAVENTRICULAR EXTRASYSTOLES [None]
  - SUPRAVENTRICULAR TACHYCARDIA [None]
